FAERS Safety Report 16992867 (Version 2)
Quarter: 2019Q4

REPORT INFORMATION
  Report Type: Spontaneous
  Country: UY (occurrence: UY)
  Receive Date: 20191105
  Receipt Date: 20191211
  Transmission Date: 20200122
  Serious: Yes (Other)
  Sender: FDA-Public Use
  Company Number: UY-REGENERON PHARMACEUTICALS, INC.-2019-63775

PATIENT

DRUGS (2)
  1. EYLEA [Suspect]
     Active Substance: AFLIBERCEPT
     Indication: NEOVASCULAR AGE-RELATED MACULAR DEGENERATION
     Dosage: UNK
  2. EYLEA [Suspect]
     Active Substance: AFLIBERCEPT
     Dosage: LAST INJECTION BEFORE EVENT ONSET. TOTAL OF 9 DOSES RECEIVED.
     Dates: start: 20191015, end: 20191015

REACTIONS (1)
  - Corneal disorder [Recovered/Resolved]

NARRATIVE: CASE EVENT DATE: 20191020
